FAERS Safety Report 24205635 (Version 1)
Quarter: 2024Q3

REPORT INFORMATION
  Report Type: Spontaneous
  Country: GB (occurrence: GB)
  Receive Date: 20240813
  Receipt Date: 20240813
  Transmission Date: 20241016
  Serious: Yes (Hospitalization, Other)
  Sender: SANOFI AVENTIS
  Company Number: GB-ADVANZ PHARMA-202403002792

PATIENT
  Age: 87 Year
  Sex: Male

DRUGS (2)
  1. ENOXAPARIN SODIUM [Suspect]
     Active Substance: ENOXAPARIN SODIUM
     Dosage: UNK
  2. LANREOTIDE [Suspect]
     Active Substance: LANREOTIDE
     Dosage: 120 MG, EVERY 28 DAYS
     Route: 058
     Dates: start: 202311

REACTIONS (10)
  - Hip fracture [Recovered/Resolved]
  - Muscular weakness [Unknown]
  - Fall [Unknown]
  - Contusion [Unknown]
  - Fall [Unknown]
  - Skin laceration [Unknown]
  - Blood pressure systolic increased [Unknown]
  - Back pain [Unknown]
  - Decreased appetite [Unknown]
  - Vomiting [Unknown]

NARRATIVE: CASE EVENT DATE: 20240417
